FAERS Safety Report 18186312 (Version 5)
Quarter: 2020Q4

REPORT INFORMATION
  Report Type: Report from Study
  Country: US (occurrence: US)
  Receive Date: 20200824
  Receipt Date: 20201005
  Transmission Date: 20210113
  Serious: No
  Sender: FDA-Public Use
  Company Number: US-BIOVITRUM-2020US4479

PATIENT
  Age: 32 Year
  Sex: Female

DRUGS (2)
  1. KINERET [Suspect]
     Active Substance: ANAKINRA
     Route: 058
  2. KINERET [Suspect]
     Active Substance: ANAKINRA
     Indication: PRODUCT USED FOR UNKNOWN INDICATION
     Route: 058

REACTIONS (13)
  - Dizziness [Unknown]
  - Injection site pain [Recovering/Resolving]
  - Urticaria [Unknown]
  - Hyperhidrosis [Unknown]
  - Contusion [Unknown]
  - Nausea [Unknown]
  - Adverse reaction [Unknown]
  - Rash [Unknown]
  - Abdominal pain upper [Unknown]
  - Hypersensitivity [Recovering/Resolving]
  - Flushing [Unknown]
  - Pain in extremity [Unknown]
  - Intentional product misuse [Unknown]

NARRATIVE: CASE EVENT DATE: 20200820
